FAERS Safety Report 23606289 (Version 1)
Quarter: 2024Q1

REPORT INFORMATION
  Report Type: Spontaneous
  Country: FR (occurrence: FR)
  Receive Date: 20240307
  Receipt Date: 20240307
  Transmission Date: 20240410
  Serious: Yes (Hospitalization, Disabling, Other)
  Sender: FDA-Public Use
  Company Number: None

PATIENT
  Sex: Male

DRUGS (5)
  1. INFANRIX HEXA [Suspect]
     Active Substance: DIPHTHERIA AND TETANUS TOXOIDS AND ACELLULAR PERTUSSIS ADSORBED, INACTIVATED POLIOVIRUS AND HAEMOPHI
     Indication: Prophylaxis
     Dosage: UNK
     Route: 030
  2. ACETAMINOPHEN [Suspect]
     Active Substance: ACETAMINOPHEN
     Indication: Product used for unknown indication
     Dosage: UNK
     Route: 065
  3. PREVNAR 13 [Suspect]
     Active Substance: PNEUMOCOCCAL 13-VALENT CONJUGATE VACCINE
     Indication: Prophylaxis
     Dosage: 0.5 ML, UNK
     Route: 030
  4. ROTATEQ [Suspect]
     Active Substance: HUMAN ROTAVIRUS A TYPE G1P7(5) STRAIN WI79 LIVE ANTIGEN\HUMAN ROTAVIRUS A TYPE G2P7(5) STRAIN SC2 LI
     Indication: Prophylaxis
     Dosage: UNK
     Route: 048
  5. PENTAVAC [Concomitant]
     Active Substance: DIPHTHERIA AND TETANUS TOXOIDS AND ACELLULAR PERTUSSIS ADSORBED, INACTIVATED POLIOVIRUS AND HAEMOPHI
     Indication: Prophylaxis
     Dosage: UNK
     Route: 030

REACTIONS (46)
  - Gastrointestinal disorder [Unknown]
  - Electroencephalogram abnormal [Unknown]
  - Neutropenia [Unknown]
  - Poor quality sleep [Unknown]
  - Eating disorder [Unknown]
  - Movement disorder [Unknown]
  - Dyspnoea [Unknown]
  - Diarrhoea [Recovered/Resolved]
  - Constipation [Unknown]
  - Kinematic imbalances due to suboccipital strain [Recovered/Resolved]
  - Pain [Not Recovered/Not Resolved]
  - Hypermetropia [Unknown]
  - Speech disorder developmental [Unknown]
  - Musculoskeletal stiffness [Unknown]
  - Screaming [Unknown]
  - Decreased appetite [Unknown]
  - Nasopharyngitis [Unknown]
  - Bronchiolitis [Unknown]
  - Emotional distress [Unknown]
  - Insomnia [Unknown]
  - Crying [Unknown]
  - Cough [Unknown]
  - Agitation [Unknown]
  - Gastrointestinal pain [Unknown]
  - Aphasia [Unknown]
  - Neck pain [Unknown]
  - Oral mucosal erythema [Unknown]
  - Epilepsy [Unknown]
  - Weight decreased [Unknown]
  - Pyrexia [Not Recovered/Not Resolved]
  - Gastroenteritis [Unknown]
  - Disturbance in social behaviour [Unknown]
  - Psychomotor retardation [Not Recovered/Not Resolved]
  - Speech disorder [Not Recovered/Not Resolved]
  - Eye movement disorder [Recovered/Resolved]
  - Posture abnormal [Recovered/Resolved]
  - Metal poisoning [Unknown]
  - Heterophoria [Unknown]
  - Weight gain poor [Unknown]
  - Gait inability [Unknown]
  - Apathy [Unknown]
  - Gastrooesophageal reflux disease [Unknown]
  - Viral infection [Unknown]
  - Eructation [Unknown]
  - Hypotonic-hyporesponsive episode [Unknown]
  - Nystagmus [Unknown]

NARRATIVE: CASE EVENT DATE: 20130315
